FAERS Safety Report 20258184 (Version 1)
Quarter: 2021Q4

REPORT INFORMATION
  Report Type: Spontaneous
  Country: TH (occurrence: TH)
  Receive Date: 20211230
  Receipt Date: 20211230
  Transmission Date: 20220303
  Serious: Yes (Other)
  Sender: FDA-Public Use
  Company Number: TH-NOVARTISPH-NVSC2021TH295182

PATIENT
  Age: 67 Year
  Sex: Female

DRUGS (2)
  1. CYCLOSPORINE [Suspect]
     Active Substance: CYCLOSPORINE
     Indication: Immunosuppressant drug therapy
     Dosage: UNK
     Route: 065
  2. PREDNISOLONE [Concomitant]
     Active Substance: PREDNISOLONE
     Indication: Immunosuppressant drug therapy
     Dosage: UNK
     Route: 065

REACTIONS (18)
  - Hydronephrosis [Unknown]
  - Transitional cell carcinoma [Unknown]
  - Haematochezia [Unknown]
  - Transitional cell carcinoma recurrent [Unknown]
  - Transitional cell cancer of the renal pelvis and ureter [Unknown]
  - Bladder transitional cell carcinoma [Unknown]
  - Pyelocaliectasis [Unknown]
  - Bladder mass [Unknown]
  - Intestinal mass [Unknown]
  - Lymphadenitis [Unknown]
  - Adhesion [Unknown]
  - Red blood cells urine positive [Unknown]
  - Peripheral artery aneurysm [Unknown]
  - Neoplasm recurrence [Unknown]
  - Gastrointestinal submucosal tumour [Unknown]
  - Haematuria [Unknown]
  - Blood creatinine increased [Unknown]
  - Anaemia [Unknown]

NARRATIVE: CASE EVENT DATE: 20120101
